FAERS Safety Report 19077519 (Version 2)
Quarter: 2021Q2

REPORT INFORMATION
  Report Type: Report from Study
  Country: US (occurrence: US)
  Receive Date: 20210331
  Receipt Date: 20210507
  Transmission Date: 20210717
  Serious: Yes (Hospitalization)
  Sender: FDA-Public Use
  Company Number: US-UCBSA-2021013294

PATIENT
  Age: 71 Year
  Sex: Female

DRUGS (1)
  1. ROTIGOTINE [Suspect]
     Active Substance: ROTIGOTINE
     Indication: RESTLESS LEGS SYNDROME
     Dosage: 3 MILLIGRAM, ONCE DAILY (QD)

REACTIONS (3)
  - Thrombosis [Recovered/Resolved]
  - Spinal stenosis [Recovering/Resolving]
  - Spondylolisthesis [Recovering/Resolving]

NARRATIVE: CASE EVENT DATE: 202103
